FAERS Safety Report 9917115 (Version 2)
Quarter: 2014Q1

REPORT INFORMATION
  Report Type: Spontaneous
  Country: US (occurrence: US)
  Receive Date: 20140221
  Receipt Date: 20140312
  Transmission Date: 20141002
  Serious: No
  Sender: FDA-Public Use
  Company Number: US-SA-2014SA018656

PATIENT
  Age: 57 Year
  Sex: Female
  Weight: 79.37 kg

DRUGS (5)
  1. KYNAMRO [Suspect]
     Indication: TYPE IIA HYPERLIPIDAEMIA
     Route: 058
     Dates: start: 20131022, end: 20131212
  2. KYNAMRO [Suspect]
     Indication: TYPE IIA HYPERLIPIDAEMIA
     Route: 058
  3. CRESTOR [Concomitant]
     Indication: DYSLIPIDAEMIA
  4. ASA [Concomitant]
     Indication: ARTERIOSCLEROSIS CORONARY ARTERY
  5. EFFEXOR-XR [Concomitant]

REACTIONS (1)
  - Hepatic enzyme increased [Recovered/Resolved]
